FAERS Safety Report 19913238 (Version 1)
Quarter: 2021Q4

REPORT INFORMATION
  Report Type: Report from Study
  Country: FR (occurrence: FR)
  Receive Date: 20211004
  Receipt Date: 20211004
  Transmission Date: 20220304
  Serious: Yes (Disabling)
  Sender: FDA-Public Use
  Company Number: FR-BAXTER-2021BAX013451

PATIENT
  Age: 72 Year
  Sex: Female
  Weight: 63 kg

DRUGS (20)
  1. METHOTREXATE [Suspect]
     Active Substance: METHOTREXATE
     Indication: Product used for unknown indication
     Dosage: ON DAY 2
     Route: 037
     Dates: start: 20201125
  2. METHOTREXATE [Suspect]
     Active Substance: METHOTREXATE
     Dosage: ON DAY 2
     Route: 037
     Dates: start: 20201223
  3. VINCRISTINE SULFATE [Suspect]
     Active Substance: VINCRISTINE SULFATE
     Indication: Product used for unknown indication
     Dosage: ON DAY 1
     Route: 065
     Dates: start: 20201124, end: 20201124
  4. VINCRISTINE SULFATE [Suspect]
     Active Substance: VINCRISTINE SULFATE
     Dosage: ON DAY 8
     Route: 065
     Dates: start: 20201201, end: 20201201
  5. VINCRISTINE SULFATE [Suspect]
     Active Substance: VINCRISTINE SULFATE
     Dosage: ON DAY 15
     Route: 065
     Dates: start: 20201208, end: 20201208
  6. VINCRISTINE SULFATE [Suspect]
     Active Substance: VINCRISTINE SULFATE
     Dosage: ON DAY 22
     Route: 065
     Dates: start: 20201215
  7. CYCLOPHOSPHAMIDE [Suspect]
     Active Substance: CYCLOPHOSPHAMIDE
     Indication: Product used for unknown indication
     Dosage: ON DAY 1
     Dates: start: 20201222, end: 20201222
  8. CYCLOPHOSPHAMIDE [Suspect]
     Active Substance: CYCLOPHOSPHAMIDE
     Dosage: ON DAY 2
     Route: 065
     Dates: start: 20201223, end: 20201223
  9. CYCLOPHOSPHAMIDE [Suspect]
     Active Substance: CYCLOPHOSPHAMIDE
     Dosage: ON DAY 3
     Route: 065
     Dates: start: 20201224
  10. INOTUZUMAB OZOGAMICIN [Suspect]
     Active Substance: INOTUZUMAB OZOGAMICIN
     Indication: Product used for unknown indication
     Dosage: ON DAY 1
     Route: 065
     Dates: start: 20201124, end: 20201124
  11. INOTUZUMAB OZOGAMICIN [Suspect]
     Active Substance: INOTUZUMAB OZOGAMICIN
     Dosage: ON DAY 8
     Route: 065
     Dates: start: 20201201, end: 20201201
  12. INOTUZUMAB OZOGAMICIN [Suspect]
     Active Substance: INOTUZUMAB OZOGAMICIN
     Dosage: ON DAY 15
     Route: 065
     Dates: start: 20201208, end: 20201208
  13. INOTUZUMAB OZOGAMICIN [Suspect]
     Active Substance: INOTUZUMAB OZOGAMICIN
     Dosage: ON DAY 1
     Route: 065
     Dates: start: 20201222, end: 20201222
  14. INOTUZUMAB OZOGAMICIN [Suspect]
     Active Substance: INOTUZUMAB OZOGAMICIN
     Dosage: ON DAY 8
     Route: 065
     Dates: start: 20201229
  15. CYTARABINE [Suspect]
     Active Substance: CYTARABINE
     Indication: Product used for unknown indication
     Dosage: ON DAY 2
     Route: 065
     Dates: start: 20201125, end: 20201125
  16. CYTARABINE [Suspect]
     Active Substance: CYTARABINE
     Dosage: ON DAY 2
     Route: 065
     Dates: start: 20201223
  17. LEUCOVORIN CALCIUM [Concomitant]
     Active Substance: LEUCOVORIN CALCIUM
     Indication: Product used for unknown indication
     Dosage: UNK
     Route: 065
     Dates: start: 20201125
  18. VALACYCLOVIR HYDROCHLORIDE [Concomitant]
     Active Substance: VALACYCLOVIR HYDROCHLORIDE
     Indication: Product used for unknown indication
     Dosage: UNK
     Route: 065
     Dates: start: 20201125
  19. FILGRASTIM [Concomitant]
     Active Substance: FILGRASTIM
     Indication: Product used for unknown indication
     Dosage: UNK
     Route: 065
     Dates: start: 20201230, end: 20210101
  20. BACTRIM [Concomitant]
     Active Substance: SULFAMETHOXAZOLE\TRIMETHOPRIM
     Indication: Product used for unknown indication
     Dosage: UNK
     Route: 065
     Dates: start: 20201125

REACTIONS (1)
  - Neuropathy peripheral [Not Recovered/Not Resolved]
